FAERS Safety Report 9468612 (Version 1)
Quarter: 2013Q3

REPORT INFORMATION
  Report Type: Spontaneous
  Country: US (occurrence: US)
  Receive Date: 20130821
  Receipt Date: 20130821
  Transmission Date: 20140515
  Serious: Yes (Death)
  Sender: FDA-Public Use
  Company Number: US-B.I. PHARMACEUTICALS,INC./RIDGEFIELD-2013-BI-25237BP

PATIENT
  Age: 82 Year
  Sex: Female

DRUGS (1)
  1. SPIRIVA [Suspect]
     Dosage: 18 MCG
     Route: 055

REACTIONS (1)
  - Cardiac failure [Fatal]
